FAERS Safety Report 6654149-3 (Version None)
Quarter: 2010Q1

REPORT INFORMATION
  Report Type: 
  Country: None (occurrence: None)
  Receive Date: 20100326
  Receipt Date: 20100315
  Transmission Date: 20100710
  Serious: Yes (Other)
  Sender: FDA-Public Use
  Company Number: BR-PFIZER INC-2010033032

PATIENT
  Age: 58 Year
  Sex: Male

DRUGS (2)
  1. CELEBRA [Suspect]
     Indication: SPONDYLITIS
     Dosage: 1 CAPSULE 2X/DAY
     Route: 048
     Dates: end: 20100313
  2. ATENOLOL [Concomitant]
     Indication: HEART RATE IRREGULAR
     Dosage: UNK

REACTIONS (1)
  - DENGUE FEVER [None]
